FAERS Safety Report 5445223-8 (Version None)
Quarter: 2007Q3

REPORT INFORMATION
  Report Type: 
  Country: None (occurrence: None)
  Receive Date: 20070730
  Receipt Date: 20070530
  Transmission Date: 20080115
  Serious: Yes (Hospitalization, Disabling)
  Sender: FDA-Public Use
  Company Number: 241573

PATIENT
  Age: 81 Year
  Sex: Female
  Weight: 51.7 kg

DRUGS (6)
  1. RITUXAN [Suspect]
     Indication: CHRONIC LYMPHOCYTIC LEUKAEMIA
     Dosage: 375, INTRAVENOUS
     Route: 042
     Dates: start: 20040927
  2. CYTOXAN [Concomitant]
  3. LEUKERAN [Concomitant]
  4. PREDNISONE TAB [Concomitant]
  5. COMPAZINE [Concomitant]
  6. LASIX [Concomitant]

REACTIONS (1)
  - PROGRESSIVE MULTIFOCAL LEUKOENCEPHALOPATHY [None]
